FAERS Safety Report 9720589 (Version 1)
Quarter: 2013Q4

REPORT INFORMATION
  Report Type: Spontaneous
  Country: IT (occurrence: IT)
  Receive Date: 20131129
  Receipt Date: 20131129
  Transmission Date: 20140711
  Serious: No
  Sender: FDA-Public Use
  Company Number: PHHY2013IT137157

PATIENT
  Age: 78 Year
  Sex: Female

DRUGS (3)
  1. TASIGNA [Suspect]
     Dosage: 800 MG, CYCLIC
     Route: 048
     Dates: start: 20110308, end: 20131106
  2. LANSOX [Concomitant]
     Dosage: 30 MG, UNK
     Route: 048
  3. CLEXANE [Concomitant]
     Dosage: 4000 IU, UNK
     Route: 058

REACTIONS (1)
  - Peripheral arterial occlusive disease [Unknown]
